FAERS Safety Report 5192722-2 (Version None)
Quarter: 2006Q4

REPORT INFORMATION
  Report Type: 
  Country: None (occurrence: None)
  Receive Date: 20061228
  Receipt Date: 20060927
  Transmission Date: 20070319
  Serious: Yes (Death, Other)
  Sender: FDA-Public Use
  Company Number: PHMT2006CA01875

PATIENT
  Sex: Female

DRUGS (3)
  1. GLEEVEC [Suspect]
     Indication: GASTROINTESTINAL STROMAL TUMOUR
     Dosage: 400 MG , QD
     Route: 048
     Dates: start: 20010101, end: 20060101
  2. GLEEVEC [Suspect]
     Dosage: 800 MG, QD
     Route: 048
     Dates: start: 20060101, end: 20060101
  3. GLEEVEC [Suspect]
     Dosage: 800 MG, QD
     Route: 048
     Dates: start: 20060901

REACTIONS (8)
  - DEATH [None]
  - DRUG INEFFECTIVE [None]
  - EYE OEDEMA [None]
  - GASTROINTESTINAL STROMAL TUMOUR [None]
  - METASTASIS [None]
  - NEOPLASM PROGRESSION [None]
  - OEDEMA PERIPHERAL [None]
  - WEIGHT INCREASED [None]
